FAERS Safety Report 15290698 (Version 1)
Quarter: 2018Q3

REPORT INFORMATION
  Report Type: Spontaneous
  Country: AT (occurrence: AT)
  Receive Date: 20180817
  Receipt Date: 20180817
  Transmission Date: 20181010
  Serious: Yes (Other)
  Sender: FDA-Public Use
  Company Number: AT-TEVA-2018-AT-940738

PATIENT
  Sex: Female

DRUGS (1)
  1. FENTANYL. [Suspect]
     Active Substance: FENTANYL
     Indication: EPIDURAL ANAESTHESIA
     Route: 008

REACTIONS (5)
  - Complication of delivery [Unknown]
  - Toxicity to various agents [Unknown]
  - Drug dispensing error [Unknown]
  - Accidental overdose [Unknown]
  - Maternal exposure during pregnancy [Unknown]
